FAERS Safety Report 12840506 (Version 2)
Quarter: 2016Q4

REPORT INFORMATION
  Report Type: Spontaneous
  Country: US (occurrence: US)
  Receive Date: 20161012
  Receipt Date: 20161110
  Transmission Date: 20170207
  Serious: No
  Sender: FDA-Public Use
  Company Number: US-SHIRE-US201612578

PATIENT
  Age: 79 Year
  Sex: Female
  Weight: 56.69 kg

DRUGS (5)
  1. XIIDRA [Suspect]
     Active Substance: LIFITEGRAST
     Indication: DRY EYE
     Dosage: 1 GTT, UNKNOWN (BOTH EYES)
     Route: 047
     Dates: start: 20160910, end: 20160910
  2. CLONIDINE. [Concomitant]
     Active Substance: CLONIDINE
     Indication: HYPERTENSION
     Dosage: 0.1 MG, AS REQ^D
     Route: 048
     Dates: start: 20160628
  3. CARDIZEM [Concomitant]
     Active Substance: DILTIAZEM HYDROCHLORIDE
     Indication: HYPERTENSION
     Dosage: 120 MG, 2X/DAY:BID
     Route: 048
     Dates: start: 20160714
  4. FENTANYL TRANSDERMAL SYSTEM [Concomitant]
     Active Substance: FENTANYL
     Indication: RHEUMATOID ARTHRITIS
     Dosage: 50 ?G, OTHER (Q3DAYS)
     Route: 062
     Dates: start: 2014
  5. METHOTREXATE. [Concomitant]
     Active Substance: METHOTREXATE
     Indication: RHEUMATOID ARTHRITIS
     Dosage: 7.5 MG (3X2.5 MG), 1X/WEEK
     Route: 048
     Dates: start: 201406

REACTIONS (3)
  - Vision blurred [Recovered/Resolved]
  - Eye irritation [Recovered/Resolved]
  - Dysgeusia [Recovered/Resolved]

NARRATIVE: CASE EVENT DATE: 20160910
